FAERS Safety Report 21980565 (Version 5)
Quarter: 2023Q1

REPORT INFORMATION
  Report Type: Report from Study
  Country: US (occurrence: US)
  Receive Date: 20230211
  Receipt Date: 20230313
  Transmission Date: 20230418
  Serious: Yes (Hospitalization, Other)
  Sender: FDA-Public Use
  Company Number: US-ABBVIE-4304398

PATIENT
  Age: 74 Year
  Sex: Male

DRUGS (4)
  1. HUMIRA [Suspect]
     Active Substance: ADALIMUMAB
     Indication: Crohn^s disease
     Dosage: CITRATE FREE/FORM STRENGTH: 40 MILLIGRAM
     Route: 058
     Dates: start: 20230121, end: 20230121
  2. HUMIRA [Suspect]
     Active Substance: ADALIMUMAB
     Dosage: LAST ADMIN DATE: 2023/FORM STRENGTH: 40 MILLIGRAM
     Route: 058
     Dates: start: 20230124
  3. HUMIRA [Suspect]
     Active Substance: ADALIMUMAB
     Dosage: CITRATE FREE/LAST ADMIN DATE:JAN 2023/?FORM STRENGTH: 40 MILLIGRAM
     Route: 058
     Dates: start: 20230121
  4. PREDNISONE [Concomitant]
     Active Substance: PREDNISONE
     Indication: Product used for unknown indication

REACTIONS (7)
  - Crohn^s disease [Recovering/Resolving]
  - Muscular weakness [Recovering/Resolving]
  - Gastrointestinal lymphoma [Recovering/Resolving]
  - Intestinal stenosis [Recovering/Resolving]
  - Post procedural discharge [Recovering/Resolving]
  - Incision site impaired healing [Recovering/Resolving]
  - Intestinal obstruction [Recovering/Resolving]

NARRATIVE: CASE EVENT DATE: 20230206
